FAERS Safety Report 5650012-5 (Version None)
Quarter: 2008Q1

REPORT INFORMATION
  Report Type: 
  Country: None (occurrence: None)
  Receive Date: 20080131
  Receipt Date: 20071024
  Transmission Date: 20080703
  Serious: No
  Sender: FDA-Public Use
  Company Number: 2006PV017744

PATIENT
  Age: 43 Year
  Sex: Female
  Weight: 70.3 kg

DRUGS (4)
  1. EXENATIDE(EXENATIDE) PEN,DISPOSABLE [Suspect]
     Indication: TYPE 2 DIABETES MELLITUS
     Dosage: 5 UG, 2/D, SUBCUTANEOUS ; 10 UG, 2/D, SUBCUTANEOUS ; 5 UG, SUBCUTANEOUS
     Route: 058
     Dates: start: 20060101, end: 20060101
  2. EXENATIDE(EXENATIDE) PEN,DISPOSABLE [Suspect]
     Indication: TYPE 2 DIABETES MELLITUS
     Dosage: 5 UG, 2/D, SUBCUTANEOUS ; 10 UG, 2/D, SUBCUTANEOUS ; 5 UG, SUBCUTANEOUS
     Route: 058
     Dates: start: 20060201, end: 20060501
  3. EXENATIDE(EXENATIDE) PEN,DISPOSABLE [Suspect]
     Indication: TYPE 2 DIABETES MELLITUS
     Dosage: 5 UG, 2/D, SUBCUTANEOUS ; 10 UG, 2/D, SUBCUTANEOUS ; 5 UG, SUBCUTANEOUS
     Route: 058
     Dates: start: 20060501, end: 20060501
  4. METFORMIN [Concomitant]

REACTIONS (6)
  - BLOOD GLUCOSE DECREASED [None]
  - CONFUSIONAL STATE [None]
  - DECREASED APPETITE [None]
  - FEELING ABNORMAL [None]
  - INCOHERENT [None]
  - WEIGHT DECREASED [None]
